FAERS Safety Report 7012341-2 (Version None)
Quarter: 2010Q3

REPORT INFORMATION
  Report Type: 
  Country: None (occurrence: None)
  Receive Date: 20100913
  Receipt Date: 20091110
  Transmission Date: 20110219
  Serious: Yes (Hospitalization)
  Sender: FDA-Public Use
  Company Number: 2009SP035699

PATIENT
  Age: 31 Year
  Sex: Female
  Weight: 67.7 kg

DRUGS (1)
  1. IMPLANON [Suspect]
     Indication: PRODUCT USED FOR UNKNOWN INDICATION
     Dosage: 1 DF;
     Dates: start: 20091104

REACTIONS (3)
  - APPLICATION SITE SWELLING [None]
  - ERYTHEMA [None]
  - PAIN IN EXTREMITY [None]
